FAERS Safety Report 20711345 (Version 1)
Quarter: 2022Q2

REPORT INFORMATION
  Report Type: Spontaneous
  Country: US (occurrence: US)
  Receive Date: 20220414
  Receipt Date: 20220414
  Transmission Date: 20220720
  Serious: No
  Sender: FDA-Public Use
  Company Number: US-PFIZER INC-202100993848

PATIENT
  Age: 32 Year
  Sex: Male
  Weight: 90.9 kg

DRUGS (1)
  1. CHANTIX [Suspect]
     Active Substance: VARENICLINE TARTRATE
     Indication: Smoking cessation therapy
     Dosage: 5 MG, 1X/DAY (EITHER 5MG OR 10MG, STARTED WITH 1 TABLET BY MOUTH DAILY, THEN 2 DAILY BY MOUTH( MORNI
     Route: 048
     Dates: start: 202102, end: 202102

REACTIONS (3)
  - Drug ineffective [Not Recovered/Not Resolved]
  - Head discomfort [Unknown]
  - Aggression [Unknown]

NARRATIVE: CASE EVENT DATE: 20210101
